FAERS Safety Report 10192867 (Version 1)
Quarter: 2014Q2

REPORT INFORMATION
  Report Type: Spontaneous
  Country: US (occurrence: US)
  Receive Date: 20140523
  Receipt Date: 20140523
  Transmission Date: 20141212
  Serious: No
  Sender: FDA-Public Use
  Company Number: US-LUNDBECK-DKLU1099495

PATIENT
  Age: 5 Year
  Sex: Female

DRUGS (3)
  1. ONFI [Suspect]
     Indication: EPILEPSY
     Route: 048
     Dates: start: 201403
  2. ONFI [Suspect]
     Dosage: DOSE INCREASED (UNSPECIFIED)
     Dates: start: 20140422
  3. KEPPRA [Concomitant]
     Indication: PRODUCT USED FOR UNKNOWN INDICATION

REACTIONS (2)
  - Blister [Not Recovered/Not Resolved]
  - Acne [Not Recovered/Not Resolved]
